FAERS Safety Report 14280431 (Version 1)
Quarter: 2017Q4

REPORT INFORMATION
  Report Type: Spontaneous
  Country: US (occurrence: None)
  Receive Date: 20171212
  Receipt Date: 20171212
  Transmission Date: 20180321
  Serious: No
  Sender: FDA-Public Use
  Company Number: None

PATIENT
  Age: 77 Year
  Sex: Male
  Weight: 91.17 kg

DRUGS (4)
  1. WHOLE FOODS MEN^S MULTI 365 [Concomitant]
  2. MULTI-VIT. [Concomitant]
  3. SALONPAS PAIN RELIEF [Suspect]
     Active Substance: MENTHOL\METHYL SALICYLATE
     Indication: MUSCULOSKELETAL PAIN
     Dosage: APPLY PATCH TO AFFECTED AREA UP TO 4X DAILY, SKIN
     Route: 061
     Dates: start: 20171101, end: 20171115
  4. SALONPAS PAIN RELIEF [Suspect]
     Active Substance: MENTHOL\METHYL SALICYLATE
     Indication: NECK PAIN
     Dosage: APPLY PATCH TO AFFECTED AREA UP TO 4X DAILY, SKIN
     Route: 061
     Dates: start: 20171101, end: 20171115

REACTIONS (1)
  - Drug ineffective [None]

NARRATIVE: CASE EVENT DATE: 20171114
